FAERS Safety Report 7282105-3 (Version None)
Quarter: 2011Q1

REPORT INFORMATION
  Report Type: 
  Country: None (occurrence: None)
  Receive Date: 20110208
  Receipt Date: 20110131
  Transmission Date: 20110831
  Serious: Yes (Hospitalization, Disabling)
  Sender: FDA-Public Use
  Company Number: US-MERCK-0705USA02655

PATIENT
  Age: 45 Year
  Sex: Female
  Weight: 65 kg

DRUGS (7)
  1. FOSAMAX [Suspect]
     Indication: SPINAL COMPRESSION FRACTURE
     Route: 048
     Dates: start: 19980301, end: 20060501
  2. PREDNISONE [Concomitant]
     Route: 065
     Dates: start: 19880101
  3. FOSAMAX [Suspect]
     Route: 048
     Dates: start: 19991101, end: 20021001
  4. ZOLOFT [Concomitant]
     Indication: DEPRESSION
     Route: 065
     Dates: start: 19980101
  5. FOSAMAX [Suspect]
     Indication: OSTEOPOROSIS
     Route: 048
     Dates: start: 19980301, end: 20060501
  6. MORPHINE [Concomitant]
     Indication: SPINAL COMPRESSION FRACTURE
     Route: 065
     Dates: start: 19980101, end: 20060101
  7. FOSAMAX [Suspect]
     Route: 048
     Dates: start: 19991101, end: 20021001

REACTIONS (26)
  - THORACIC VERTEBRAL FRACTURE [None]
  - RHEUMATOID ARTHRITIS [None]
  - OSTEOPENIA [None]
  - BONE DISORDER [None]
  - FRACTURE [None]
  - CHONDROCALCINOSIS PYROPHOSPHATE [None]
  - ANXIETY [None]
  - RIB FRACTURE [None]
  - PHARYNGEAL CYST [None]
  - ORAL HERPES [None]
  - OSTEONECROSIS OF JAW [None]
  - OSTEOMYELITIS [None]
  - FOOT DEFORMITY [None]
  - LYMPHADENITIS [None]
  - ARTHROPATHY [None]
  - DEPRESSION [None]
  - OESOPHAGEAL CANDIDIASIS [None]
  - ACUTE SINUSITIS [None]
  - HERPES ZOSTER [None]
  - HYPOAESTHESIA [None]
  - IMPAIRED GASTRIC EMPTYING [None]
  - HYPERTENSION [None]
  - POLYP COLORECTAL [None]
  - SPINAL OSTEOARTHRITIS [None]
  - FALL [None]
  - DRY EYE [None]
